FAERS Safety Report 5964185-8 (Version None)
Quarter: 2008Q4

REPORT INFORMATION
  Report Type: 
  Country: None (occurrence: None)
  Receive Date: 20081124
  Receipt Date: 20081111
  Transmission Date: 20090506
  Serious: Yes (Hospitalization, Other)
  Sender: FDA-Public Use
  Company Number: GB-GENENTECH-270076

PATIENT
  Age: 82 Year
  Sex: Female

DRUGS (7)
  1. BEVACIZUMAB [Suspect]
     Indication: COLORECTAL CANCER
     Dosage: 7.5 MG/M2, UNK
     Route: 065
     Dates: start: 20070401, end: 20070701
  2. XELODA [Suspect]
     Indication: METASTASES TO LIVER
     Dosage: 1250 MG/M2, UNK
     Route: 065
     Dates: start: 20030101, end: 20030301
  3. XELODA [Suspect]
     Dosage: 1000 MG/M2
     Route: 065
     Dates: start: 20030401
  4. XELODA [Suspect]
     Dosage: UNK
     Route: 065
     Dates: start: 20040701
  5. XELODA [Suspect]
     Dosage: UNK
     Route: 065
     Dates: start: 20050501, end: 20051101
  6. XELODA [Suspect]
     Dosage: 500 MG/M2, UNK
     Route: 065
     Dates: start: 20070401, end: 20070701
  7. OXALIPLATIN [Suspect]
     Indication: COLORECTAL CANCER
     Dosage: 85 MG, UNK
     Route: 065
     Dates: start: 20070401, end: 20070701

REACTIONS (3)
  - DECREASED APPETITE [None]
  - MUCOSAL INFLAMMATION [None]
  - NEUROPATHY PERIPHERAL [None]
